FAERS Safety Report 7941701-8 (Version None)
Quarter: 2011Q4

REPORT INFORMATION
  Report Type: 
  Country: None (occurrence: None)
  Receive Date: 20111128
  Receipt Date: 20111128
  Transmission Date: 20120403
  Serious: Yes (Death)
  Sender: FDA-Public Use
  Company Number: None

PATIENT
  Age: 20 Year
  Sex: Male
  Weight: 72.574 kg

DRUGS (1)
  1. METHADONE HCL [Suspect]
     Indication: DRUG DEPENDENCE
     Dosage: 30-50 MG
     Route: 048
     Dates: start: 20060807, end: 20060811

REACTIONS (4)
  - DYSPHAGIA [None]
  - PRURITUS [None]
  - HALLUCINATION [None]
  - DYSURIA [None]
